FAERS Safety Report 24145145 (Version 2)
Quarter: 2024Q3

REPORT INFORMATION
  Report Type: Spontaneous
  Country: JP (occurrence: JP)
  Receive Date: 20240729
  Receipt Date: 20240807
  Transmission Date: 20241016
  Serious: Yes (Death, Other)
  Sender: MERCK
  Company Number: JP-MSD-M2024-29186

PATIENT
  Age: 64 Year
  Sex: Female

DRUGS (9)
  1. KEYTRUDA [Suspect]
     Active Substance: PEMBROLIZUMAB
     Indication: Triple negative breast cancer
     Dosage: 200 MILLIGRAM, Q3W
     Route: 041
     Dates: start: 20240326, end: 2024
  2. METOCLOPRAMIDE HYDROCHLORIDE [Concomitant]
     Active Substance: METOCLOPRAMIDE HYDROCHLORIDE
     Dosage: UNK
     Route: 065
  3. RABEPRAZOLE SODIUM [Concomitant]
     Active Substance: RABEPRAZOLE SODIUM
     Dosage: UNK
     Route: 065
  4. BILASTINE [Concomitant]
     Active Substance: BILASTINE
     Dosage: UNK
     Route: 065
  5. ELDECALCITOL [Concomitant]
     Active Substance: ELDECALCITOL
     Dosage: UNK
     Route: 065
  6. FERRIC AMMONIUM CITRATE [Concomitant]
     Active Substance: FERRIC AMMONIUM CITRATE
     Dosage: UNK
     Route: 065
  7. HERBALS [Concomitant]
     Active Substance: HERBALS
     Dosage: UNK
     Route: 065
  8. MIROGABALIN BESYLATE [Concomitant]
     Active Substance: MIROGABALIN BESYLATE
     Dosage: UNK
     Route: 065
  9. DECADRON [Concomitant]
     Active Substance: DEXAMETHASONE
     Dosage: UNK
     Route: 065

REACTIONS (1)
  - Melaena [Fatal]

NARRATIVE: CASE EVENT DATE: 20240703
